FAERS Safety Report 26004573 (Version 2)
Quarter: 2025Q4

REPORT INFORMATION
  Report Type: Spontaneous
  Country: EU (occurrence: EU)
  Receive Date: 20251106
  Receipt Date: 20251111
  Transmission Date: 20260117
  Serious: Yes (Life-Threatening, Hospitalization, Congenital Anomaly, Other)
  Sender: AUROBINDO
  Company Number: EU-EMB-M202402280-1

PATIENT
  Sex: Female

DRUGS (4)
  1. AMOXICILLIN\CLAVULANIC ACID [Suspect]
     Active Substance: AMOXICILLIN\CLAVULANIC ACID
     Indication: Sinusitis
     Dosage: UNK (875MG/125 MG)
     Route: 064
     Dates: start: 202401, end: 202401
  2. KESIMPTA [Suspect]
     Active Substance: OFATUMUMAB
     Indication: Relapsing-remitting multiple sclerosis
     Dosage: 20 MILLIGRAM (LAST APPLICATION IN GW 6)
     Route: 064
     Dates: start: 202311, end: 202401
  3. FIASP [Concomitant]
     Active Substance: INSULIN ASPART
     Indication: Type 1 diabetes mellitus
     Dosage: UNK UNK, AS NECESSARY
     Route: 064
     Dates: start: 202311, end: 202408
  4. LEVEMIR [Concomitant]
     Active Substance: INSULIN DETEMIR
     Indication: Type 1 diabetes mellitus
     Dosage: 1 DOSAGE FORM, AS NECESSARY (2X/D AS NECESSARY)
     Route: 064
     Dates: start: 202311, end: 202408

REACTIONS (3)
  - Congenital diaphragmatic hernia [Recovered/Resolved with Sequelae]
  - Dextrocardia [Not Recovered/Not Resolved]
  - Foetal exposure during pregnancy [Unknown]
